FAERS Safety Report 5921305-9 (Version None)
Quarter: 2008Q4

REPORT INFORMATION
  Report Type: 
  Country: None (occurrence: None)
  Receive Date: 20081014
  Receipt Date: 20080929
  Transmission Date: 20090506
  Serious: Yes (Other)
  Sender: FDA-Public Use
  Company Number: MC200800470

PATIENT
  Sex: Male

DRUGS (2)
  1. ANGIOMAX [Suspect]
     Indication: PERCUTANEOUS CORONARY INTERVENTION
     Dosage: SEE IMAGE
     Route: 042
  2. HEPARIN [Suspect]
     Indication: CORONARY REVASCULARISATION
     Dosage: 400 IU, BOLUS, INTRAVENOUS
     Route: 042

REACTIONS (4)
  - COAGULOPATHY [None]
  - MYOCARDIAL INFARCTION [None]
  - POST PROCEDURAL HAEMORRHAGE [None]
  - SURGICAL PROCEDURE REPEATED [None]
